FAERS Safety Report 14229821 (Version 1)
Quarter: 2017Q4

REPORT INFORMATION
  Report Type: Spontaneous
  Country: BG (occurrence: BG)
  Receive Date: 20171128
  Receipt Date: 20171128
  Transmission Date: 20180321
  Serious: Yes (Other)
  Sender: FDA-Public Use
  Company Number: BG-ROCHE-1893833

PATIENT
  Sex: Female

DRUGS (3)
  1. ZELBORAF [Suspect]
     Active Substance: VEMURAFENIB
     Dosage: ZELBORAF 2 X 3 TABLETS DAILY
     Route: 048
     Dates: start: 2016, end: 2017
  2. ZELBORAF [Suspect]
     Active Substance: VEMURAFENIB
     Dosage: ZELBORAF 2 X 2 TABL. DAILY
     Route: 048
     Dates: start: 2017
  3. ZELBORAF [Suspect]
     Active Substance: VEMURAFENIB
     Indication: MALIGNANT MELANOMA
     Dosage: ZELBORAF 2 X 4 TABLETS DAILY
     Route: 048
     Dates: start: 2011, end: 2016

REACTIONS (3)
  - Uveitis [Recovered/Resolved]
  - Cataract [Recovered/Resolved]
  - Ocular hyperaemia [Not Recovered/Not Resolved]

NARRATIVE: CASE EVENT DATE: 2016
